FAERS Safety Report 5197163-X (Version None)
Quarter: 2007Q1

REPORT INFORMATION
  Report Type: 
  Country: None (occurrence: None)
  Receive Date: 20070103
  Receipt Date: 20061229
  Transmission Date: 20070707
  Serious: Yes (Hospitalization)
  Sender: FDA-Public Use
  Company Number: JP-JPN-A200605605

PATIENT
  Age: 75 Year
  Sex: Female

DRUGS (3)
  1. REQUIP [Suspect]
     Indication: PARKINSON'S DISEASE
     Dosage: .75MG THREE TIMES PER DAY
     Route: 048
     Dates: start: 20061209, end: 20061210
  2. MENESIT [Concomitant]
     Dosage: 300MG PER DAY
     Route: 048
  3. SYMMETREL [Concomitant]
     Dosage: 100MG PER DAY
     Route: 048

REACTIONS (1)
  - DIZZINESS [None]
